FAERS Safety Report 24303445 (Version 1)
Quarter: 2024Q3

REPORT INFORMATION
  Report Type: Spontaneous
  Country: US (occurrence: None)
  Receive Date: 20240910
  Receipt Date: 20240910
  Transmission Date: 20241016
  Serious: Yes (Other)
  Sender: Public
  Company Number: None

PATIENT
  Age: 47 Year
  Sex: Female

DRUGS (1)
  1. IVABRADINE [Suspect]
     Active Substance: IVABRADINE
     Indication: Supraventricular tachycardia
     Dosage: 5 MG TWICE DAIL ORAL
     Route: 048
     Dates: start: 20240818, end: 20240830

REACTIONS (1)
  - Headache [None]

NARRATIVE: CASE EVENT DATE: 20240830
